FAERS Safety Report 6460056-1 (Version None)
Quarter: 2009Q4

REPORT INFORMATION
  Report Type: 
  Country: None (occurrence: None)
  Receive Date: 20091129
  Receipt Date: 20091119
  Transmission Date: 20100525
  Serious: Yes (Hospitalization)
  Sender: FDA-Public Use
  Company Number: PHHO2009DE13002

PATIENT
  Sex: Female
  Weight: 51 kg

DRUGS (3)
  1. MYCOPHENOLATE MOFETIL [Suspect]
     Indication: LUNG TRANSPLANT
     Dosage: 1500 MG/DAY
     Route: 048
     Dates: start: 20070718
  2. NEORAL [Suspect]
     Dosage: 100 MG
     Dates: start: 20070718
  3. NEORAL [Suspect]
     Dosage: 85 MG

REACTIONS (3)
  - BRONCHITIS BACTERIAL [None]
  - LUNG INFECTION [None]
  - OBLITERATIVE BRONCHIOLITIS [None]
